FAERS Safety Report 9794143 (Version 1)
Quarter: 2014Q1

REPORT INFORMATION
  Report Type: Spontaneous
  Country: US (occurrence: US)
  Receive Date: 20140102
  Receipt Date: 20140102
  Transmission Date: 20141002
  Serious: No
  Sender: FDA-Public Use
  Company Number: US-AMGEN-USASP2013089327

PATIENT
  Age: 59 Year
  Sex: Female
  Weight: 70.29 kg

DRUGS (3)
  1. ENBREL [Suspect]
     Indication: PRODUCT USED FOR UNKNOWN INDICATION
     Dosage: 50 MG, QWK
     Route: 065
     Dates: start: 201309, end: 201312
  2. CALCIUM [Suspect]
     Indication: PRODUCT USED FOR UNKNOWN INDICATION
     Dosage: 600 MG, QD
     Route: 065
  3. LEVOTHYROXINE [Concomitant]
     Indication: THYROID DISORDER
     Dosage: 0.125 MG, QD

REACTIONS (4)
  - Drug ineffective [Unknown]
  - Vitamin D decreased [Recovered/Resolved]
  - Hepatic enzyme increased [Recovered/Resolved]
  - Skin reaction [Recovered/Resolved]
